FAERS Safety Report 6748116-9 (Version None)
Quarter: 2010Q2

REPORT INFORMATION
  Report Type: 
  Country: None (occurrence: None)
  Receive Date: 20100531
  Receipt Date: 20100527
  Transmission Date: 20101027
  Serious: Yes (Life-Threatening, Hospitalization)
  Sender: FDA-Public Use
  Company Number: IT-BRISTOL-MYERS SQUIBB COMPANY-15051667

PATIENT
  Age: 71 Year
  Sex: Female

DRUGS (3)
  1. ORENCIA [Suspect]
     Indication: RHEUMATOID ARTHRITIS
     Dosage: 16-MAR-2010 TO 30-MAR-2010;3 INFUSION; CYCLIC ADMINISTRATION:750MG VIA IV
     Route: 042
     Dates: start: 20100316
  2. METHOTREXATE [Concomitant]
     Dates: start: 20060101
  3. MEDROL [Concomitant]
     Dosage: 1 DF=4MG TABS
     Route: 048
     Dates: start: 20060101

REACTIONS (4)
  - EPISTAXIS [None]
  - PANCYTOPENIA [None]
  - RECTAL HAEMORRHAGE [None]
  - SUBCUTANEOUS HAEMATOMA [None]
